FAERS Safety Report 6636696-3 (Version None)
Quarter: 2010Q1

REPORT INFORMATION
  Report Type: 
  Country: None (occurrence: None)
  Receive Date: 20100316
  Receipt Date: 20100305
  Transmission Date: 20100710
  Serious: Yes (Other)
  Sender: FDA-Public Use
  Company Number: B0627418A

PATIENT
  Sex: Female

DRUGS (5)
  1. SERETIDE [Suspect]
     Indication: ASTHMA
     Dosage: 500MCG PER DAY
     Route: 055
     Dates: start: 20100115, end: 20100116
  2. BLOPRESS [Concomitant]
     Indication: HYPERTENSION
     Dosage: 8MG PER DAY
     Route: 048
     Dates: start: 20070326
  3. SEDIEL [Concomitant]
     Route: 048
  4. MEVALOTIN [Concomitant]
     Dosage: 2.1MG PER DAY
     Route: 048
     Dates: start: 20070326
  5. PENTOXYVERINE [Concomitant]
     Route: 048
     Dates: start: 20070326

REACTIONS (12)
  - ATRIAL FIBRILLATION [None]
  - BLOOD ALKALINE PHOSPHATASE INCREASED [None]
  - BLOOD CHOLESTEROL INCREASED [None]
  - BLOOD GLUCOSE INCREASED [None]
  - EOSINOPHIL COUNT INCREASED [None]
  - HIGH DENSITY LIPOPROTEIN INCREASED [None]
  - HYPOTENSION [None]
  - MYOCARDIAL ISCHAEMIA [None]
  - PAINFUL RESPIRATION [None]
  - PALPITATIONS [None]
  - PROTEIN TOTAL INCREASED [None]
  - SINUS BRADYCARDIA [None]
